FAERS Safety Report 8882280 (Version 1)
Quarter: 2012Q4

REPORT INFORMATION
  Report Type: 
  Country: US (occurrence: US)
  Receive Date: 20121102
  Receipt Date: 20121102
  Transmission Date: 20130627
  Serious: Yes (Hospitalization)
  Sender: FDA-Public Use
  Company Number: US-JNJFOC-20121014133

PATIENT
  Age: 62 None
  Sex: Female
  Weight: 105.24 kg

DRUGS (2)
  1. SIMPONI [Suspect]
     Indication: PSORIATIC ARTHROPATHY
     Route: 058
     Dates: start: 2009
  2. ALL OTHER THERAPEUTICS [Concomitant]
     Route: 065

REACTIONS (5)
  - Coronary artery occlusion [Recovered/Resolved]
  - Staphylococcal infection [Unknown]
  - Device malfunction [Recovered/Resolved]
  - Drug dose omission [Not Recovered/Not Resolved]
  - Accidental exposure to product [Recovered/Resolved]
